FAERS Safety Report 11272257 (Version 1)
Quarter: 2015Q3

REPORT INFORMATION
  Report Type: Spontaneous
  Country: US (occurrence: None)
  Receive Date: 20150713
  Receipt Date: 20150713
  Transmission Date: 20151125
  Serious: Yes (Life-Threatening, Hospitalization, Disabling)
  Sender: FDA-Public Use
  Company Number: None

PATIENT
  Age: 53 Year
  Sex: Male
  Weight: 104.33 kg

DRUGS (2)
  1. MOBIC [Suspect]
     Active Substance: MELOXICAM
     Indication: BACK PAIN
     Route: 048
  2. MOBIC [Suspect]
     Active Substance: MELOXICAM
     Indication: NECK PAIN
     Route: 048

REACTIONS (2)
  - Myocardial infarction [None]
  - Palpitations [None]

NARRATIVE: CASE EVENT DATE: 20130813
